FAERS Safety Report 4695527-1 (Version None)
Quarter: 2005Q2

REPORT INFORMATION
  Report Type: 
  Country: None (occurrence: None)
  Receive Date: 20050608
  Receipt Date: 20050426
  Transmission Date: 20051028
  Serious: Yes (Other)
  Sender: FDA-Public Use
  Company Number: A03200501213

PATIENT
  Sex: Female

DRUGS (6)
  1. ELOXATIN [Suspect]
     Indication: COLORECTAL CANCER
     Dosage: 150 MG Q2W - INTRAVENOUS NOS
     Route: 042
     Dates: start: 20050425, end: 20050425
  2. FLUOROURACIL [Suspect]
     Indication: COLORECTAL CANCER
     Dosage: INTRAVENOUS NOS
     Route: 042
     Dates: start: 20050425
  3. LEUCOVORIN [Concomitant]
  4. BEVACIZUMAB [Concomitant]
  5. PALONOSETRON [Concomitant]
  6. DEXAMETHASONE [Concomitant]

REACTIONS (5)
  - CHILLS [None]
  - DIZZINESS [None]
  - DYSPHONIA [None]
  - DYSPNOEA [None]
  - RASH [None]
